FAERS Safety Report 7533447-5 (Version None)
Quarter: 2011Q2

REPORT INFORMATION
  Report Type: 
  Country: None (occurrence: None)
  Receive Date: 20110608
  Receipt Date: 20091120
  Transmission Date: 20111010
  Serious: Yes (Death, Hospitalization, Other)
  Sender: FDA-Public Use
  Company Number: US-BAYER-200941014NA

PATIENT
  Age: 65 Year
  Sex: Male
  Weight: 94.785 kg

DRUGS (39)
  1. LEVOTHYROXINE SODIUM [Concomitant]
     Dosage: 0.2 UNK, UNK
  2. HEPARIN [Concomitant]
     Dosage: 10000 U
     Route: 042
     Dates: start: 20060211, end: 20060211
  3. HEPARIN [Concomitant]
     Dosage: 5000 U, UNK
     Dates: start: 20060211, end: 20060211
  4. CEFUROXIME [Concomitant]
     Dosage: 3 MG, UNK
     Route: 042
     Dates: start: 20060211, end: 20060211
  5. PROTAMINE SULFATE [Concomitant]
     Dosage: 250 MG, UNK
     Route: 042
     Dates: start: 20060211
  6. INSULIN [Concomitant]
  7. CELEBREX [Concomitant]
     Dosage: 200 MG, UNK
  8. DOBUTREX [Concomitant]
  9. FUROSEMIDE [Concomitant]
  10. TRASYLOL [Suspect]
     Indication: INTRA-AORTIC BALLOON PLACEMENT
  11. ALLOPURINOL [Concomitant]
     Dosage: 100 MG, UNK
  12. MANNITOL [Concomitant]
     Dosage: 25 G, UNK
     Route: 042
     Dates: start: 20060211, end: 20060211
  13. CORLOPAM [Concomitant]
  14. ACETYLSALICYLIC ACID SRT [Concomitant]
     Dosage: 325 MG, QD
     Route: 048
  15. SYNTHROID [Concomitant]
     Dosage: UNK UNK, QD
     Route: 048
  16. PAPAVERIN [Concomitant]
     Dosage: UNK
     Route: 042
     Dates: start: 20060211
  17. ZOCOR [Concomitant]
     Dosage: 40 MG, UNK
  18. EPINEPHRINE [Concomitant]
     Dosage: UNK
     Route: 042
     Dates: start: 20060211, end: 20060211
  19. SODIUM BICARBONATE [Concomitant]
     Dosage: 50 MEQ, UNK
     Route: 042
  20. LASIX [Concomitant]
     Dosage: 20 MG, UNK
     Route: 042
     Dates: start: 20060211, end: 20060211
  21. CALCIUM CHLORIDE [Concomitant]
     Dosage: 1 G, UNK
     Route: 042
     Dates: start: 20060211, end: 20060211
  22. PHENYLEPHRINE HCL [Concomitant]
     Dosage: 2.5 MG, UNK
     Route: 042
     Dates: start: 20060211, end: 20060211
  23. REGLAN [Concomitant]
     Dosage: 10 MG, QD
     Route: 048
  24. UNIVASC [Concomitant]
  25. INTEGRILIN [Concomitant]
  26. PLAVIX [Concomitant]
     Dosage: 75 MG, UNK
  27. HEPARIN [Concomitant]
     Dosage: UNK
     Route: 042
     Dates: start: 20060211, end: 20060211
  28. ENALAPRIL MALEATE [Concomitant]
     Indication: HYPERTENSION
     Dosage: UNK
     Dates: start: 20050101, end: 20070101
  29. TRASYLOL [Suspect]
     Indication: CORONARY ARTERY BYPASS
     Dosage: 200 ML, UNK
     Route: 042
     Dates: start: 20060211, end: 20060211
  30. SPIRONOLACTONE [Concomitant]
  31. UNIRETIC [Concomitant]
     Dosage: 15 MG, UNK
  32. VERSED [Concomitant]
     Dosage: 5 MG, UNK
     Route: 042
     Dates: start: 20060211, end: 20060211
  33. FENTANYL [Concomitant]
     Dosage: UNK
     Route: 042
     Dates: start: 20060211, end: 20060211
  34. DOBUTAMINE HYDROCHLORIDE [Concomitant]
     Dosage: UNK
     Route: 042
     Dates: start: 20060211, end: 20060211
  35. LIDOCAINE [Concomitant]
     Dosage: 100 MG, UNK
     Route: 042
     Dates: start: 20060211, end: 20060211
  36. NEXIUM [Concomitant]
     Dosage: 40 MG, UNK
  37. MAGNESIUM SULFATE [Concomitant]
     Dosage: 2 G, UNK
     Route: 042
     Dates: start: 20060211, end: 20060211
  38. IBUPROFEN [Concomitant]
  39. PLETAL [Concomitant]
     Dosage: 100 MG, BID
     Route: 048

REACTIONS (10)
  - ANHEDONIA [None]
  - RENAL FAILURE [None]
  - INJURY [None]
  - ANXIETY [None]
  - FEAR [None]
  - CARDIOGENIC SHOCK [None]
  - DEPRESSION [None]
  - DEATH [None]
  - UNEVALUABLE EVENT [None]
  - PAIN [None]
